FAERS Safety Report 9410673 (Version 2)
Quarter: 2013Q4

REPORT INFORMATION
  Report Type: Report from Study
  Country: CN (occurrence: CN)
  Receive Date: 20130719
  Receipt Date: 20131202
  Transmission Date: 20140711
  Serious: Yes (Other)
  Sender: FDA-Public Use
  Company Number: CN-BRISTOL-MYERS SQUIBB COMPANY-19101419

PATIENT
  Age: 31 Year
  Sex: Male

DRUGS (2)
  1. SAXAGLIPTIN [Suspect]
     Indication: TYPE 2 DIABETES MELLITUS
     Route: 048
  2. POLYENEPHOSPHATIDYL CHOLINE [Concomitant]
     Dates: start: 20130815

REACTIONS (3)
  - Alanine aminotransferase increased [Recovered/Resolved]
  - Aspartate aminotransferase increased [Unknown]
  - Blood bilirubin increased [Unknown]
